FAERS Safety Report 7207598-9 (Version None)
Quarter: 2011Q1

REPORT INFORMATION
  Report Type: 
  Country: None (occurrence: None)
  Receive Date: 20110103
  Receipt Date: 20101222
  Transmission Date: 20110831
  Serious: Yes (Other)
  Sender: FDA-Public Use
  Company Number: US-ELI_LILLY_AND_COMPANY-US201012005629

PATIENT
  Sex: Female
  Weight: 83.9 kg

DRUGS (4)
  1. BYETTA [Suspect]
     Dosage: 10 UG, 2/D
     Route: 058
     Dates: start: 20080101
  2. LANTUS [Concomitant]
     Indication: TYPE 2 DIABETES MELLITUS
     Dosage: UNK, EACH EVENING
  3. HUMALOG [Concomitant]
     Indication: TYPE 2 DIABETES MELLITUS
  4. BYETTA [Suspect]
     Indication: TYPE 2 DIABETES MELLITUS
     Dosage: 5 UG, 2/D
     Route: 058
     Dates: start: 20080101

REACTIONS (4)
  - OFF LABEL USE [None]
  - WEIGHT DECREASED [None]
  - HYPOGLYCAEMIC UNCONSCIOUSNESS [None]
  - FEELING ABNORMAL [None]
